FAERS Safety Report 8613458 (Version 2)
Quarter: 2012Q4

REPORT INFORMATION
  Report Type: 
  Country: AU (occurrence: AU)
  Receive Date: 20120613
  Receipt Date: 20120829
  Transmission Date: 20130627
  Serious: Yes (Hospitalization)
  Sender: FDA-Public Use
  Company Number: AU-B.I. PHARMACEUTICALS,INC./RIDGEFIELD-2012-AU-01054AU

PATIENT
  Sex: Male

DRUGS (4)
  1. SIFROL [Suspect]
     Indication: PARKINSON^S DISEASE
     Dates: start: 201004
  2. SIFROL [Suspect]
  3. MADOPAR [Concomitant]
     Dosage: 62.5 - 125
  4. COMTAN [Concomitant]
     Dosage: 1200 mg

REACTIONS (2)
  - Drug dispensing error [Unknown]
  - Parkinson^s disease [Recovered/Resolved]
